FAERS Safety Report 22067977 (Version 1)
Quarter: 2023Q1

REPORT INFORMATION
  Report Type: Other
  Country: IE (occurrence: None)
  Receive Date: 20230307
  Receipt Date: 20230307
  Transmission Date: 20230417
  Serious: Yes (Other)
  Sender: FDA-Public Use
  Company Number: IE-ROCHE-3297955

PATIENT
  Sex: Female

DRUGS (1)
  1. OCREVUS [Suspect]
     Active Substance: OCRELIZUMAB
     Indication: Product used for unknown indication
     Dosage: 600MGS IN X 2 300MGS VIALS
     Route: 065

REACTIONS (2)
  - Fatigue [Unknown]
  - Lower respiratory tract infection [Unknown]
